FAERS Safety Report 21254745 (Version 2)
Quarter: 2022Q3

REPORT INFORMATION
  Report Type: Other
  Country: JP (occurrence: JP)
  Receive Date: 20220825
  Receipt Date: 20220826
  Transmission Date: 20221026
  Serious: Yes (Hospitalization)
  Sender: FDA-Public Use
  Company Number: JP-CHUGAI-2022030652

PATIENT
  Age: 49 Year
  Sex: Female

DRUGS (2)
  1. ATEZOLIZUMAB [Suspect]
     Active Substance: ATEZOLIZUMAB
     Indication: Triple negative breast cancer
     Dosage: 840 MILLIGRAM
     Route: 041
     Dates: start: 20220719, end: 20220719
  2. PACLITAXEL [Concomitant]
     Active Substance: PACLITAXEL
     Indication: Triple negative breast cancer
     Dosage: 159 MILLIGRAM, QD
     Route: 041
     Dates: start: 20220719, end: 20220719

REACTIONS (1)
  - Pneumonitis [Recovering/Resolving]

NARRATIVE: CASE EVENT DATE: 20220720
